FAERS Safety Report 8264600-3 (Version None)
Quarter: 2012Q2

REPORT INFORMATION
  Report Type: 
  Country: None (occurrence: None)
  Receive Date: 20120403
  Receipt Date: 20120327
  Transmission Date: 20120825
  Serious: Yes (Hospitalization, Other)
  Sender: FDA-Public Use
  Company Number: 2010MA002240

PATIENT
  Sex: Female
  Weight: 76.2043 kg

DRUGS (38)
  1. AZITHROMYCIN [Concomitant]
  2. CELEBREX [Concomitant]
  3. COZAAR [Concomitant]
  4. DETROL [Concomitant]
  5. THYROID REPLACEMENT [Concomitant]
  6. LEVOTHYROXINE SODIUM [Concomitant]
  7. MELOXICAM [Concomitant]
  8. AMOXICILLIN [Concomitant]
  9. ETODOLAC [Concomitant]
  10. PULMICORT [Concomitant]
  11. TETRABENZAPINE [Concomitant]
  12. METOCLOPRAMIDE [Suspect]
     Indication: NAUSEA
     Dosage: 10 MG;PO
     Route: 048
     Dates: start: 19990101, end: 20090801
  13. METOCLOPRAMIDE [Suspect]
     Indication: IMPAIRED GASTRIC EMPTYING
     Dosage: 10 MG;PO
     Route: 048
     Dates: start: 19990101, end: 20090801
  14. METOCLOPRAMIDE [Suspect]
     Indication: GASTROOESOPHAGEAL REFLUX DISEASE
     Dosage: 10 MG;PO
     Route: 048
     Dates: start: 19990101, end: 20090801
  15. METOCLOPRAMIDE [Suspect]
     Indication: VOMITING
     Dosage: 10 MG;PO
     Route: 048
     Dates: start: 19990101, end: 20090801
  16. CIPROFLOXACIN HCL [Concomitant]
  17. HYDROCODONE BITARTRATE AND ACETAMINOPHEN [Concomitant]
  18. PROPOXYPHENE HCL AND ACETAMINOPHEN [Concomitant]
  19. AMLODIPINE [Concomitant]
  20. PROTEIN PUMP INHIBITORS [Concomitant]
  21. XYZAL [Concomitant]
  22. PREVACID [Concomitant]
  23. PHENERGAN HCL [Concomitant]
  24. LEVSIN SL [Concomitant]
  25. CARAFATE [Concomitant]
  26. FLUOXETINE [Concomitant]
  27. SINGULAIR [Concomitant]
  28. TYLENOL ARTHRITIS [Concomitant]
  29. XOPENEX [Concomitant]
  30. MORPHINE [Concomitant]
  31. PROTONIX [Concomitant]
  32. ZOFRAN [Concomitant]
  33. CLONAZEPAM [Concomitant]
  34. DEPO-MEDROL [Concomitant]
  35. DITROPAN [Concomitant]
  36. HYDROCHLOROTHIAZIDE [Concomitant]
  37. PROZAC [Concomitant]
  38. PNEUMOVAX 23 [Concomitant]

REACTIONS (64)
  - TARDIVE DYSKINESIA [None]
  - EMOTIONAL DISTRESS [None]
  - DYSKINESIA [None]
  - EXCESSIVE EYE BLINKING [None]
  - BACK PAIN [None]
  - APATHY [None]
  - CEREBROVASCULAR ACCIDENT [None]
  - OESOPHAGITIS ULCERATIVE [None]
  - BILIARY DILATATION [None]
  - GASTROINTESTINAL MUCOSAL DISORDER [None]
  - RHEUMATOID ARTHRITIS [None]
  - ASTHMA [None]
  - GASTRITIS [None]
  - SINUSITIS [None]
  - ABDOMINAL PAIN UPPER [None]
  - ECONOMIC PROBLEM [None]
  - FLATULENCE [None]
  - STRABISMUS [None]
  - RESTLESSNESS [None]
  - TONGUE BITING [None]
  - HYPERTENSION [None]
  - WHEEZING [None]
  - INTESTINAL POLYP [None]
  - DRY MOUTH [None]
  - DYSPHAGIA [None]
  - IMPAIRED GASTRIC EMPTYING [None]
  - OBSTRUCTION GASTRIC [None]
  - ESSENTIAL HYPERTENSION [None]
  - HYPOTHYROIDISM [None]
  - MUSCULAR WEAKNESS [None]
  - CHOREA [None]
  - NAUSEA [None]
  - OESOPHAGOGASTRIC FUNDOPLASTY [None]
  - BALANCE DISORDER [None]
  - OESOPHAGITIS [None]
  - WEIGHT DECREASED [None]
  - ABDOMINAL PAIN [None]
  - SPEECH DISORDER [None]
  - GRIMACING [None]
  - ABDOMINAL DISTENSION [None]
  - INCORRECT DRUG ADMINISTRATION DURATION [None]
  - MUSCLE TIGHTNESS [None]
  - URINARY TRACT INFECTION [None]
  - DEPRESSION [None]
  - ORTHOPNOEA [None]
  - MALAISE [None]
  - GASTRIC STENOSIS [None]
  - FAECAL INCONTINENCE [None]
  - URINARY INCONTINENCE [None]
  - VOMITING [None]
  - ABDOMINAL PAIN LOWER [None]
  - FALL [None]
  - COUGH [None]
  - CHEST DISCOMFORT [None]
  - SPUTUM DISCOLOURED [None]
  - DYSPNOEA EXERTIONAL [None]
  - ARTHROPATHY [None]
  - RENAL CYST [None]
  - HIATUS HERNIA [None]
  - GASTROINTESTINAL TRACT MUCOSAL DISCOLOURATION [None]
  - EYE MOVEMENT DISORDER [None]
  - DIZZINESS [None]
  - GASTROOESOPHAGEAL REFLUX DISEASE [None]
  - UNEVALUABLE EVENT [None]
